FAERS Safety Report 9186438 (Version 1)
Quarter: 2013Q1

REPORT INFORMATION
  Report Type: Spontaneous
  Country: US (occurrence: None)
  Receive Date: 20130321
  Receipt Date: 20130321
  Transmission Date: 20140127
  Serious: Yes (Hospitalization)
  Sender: FDA-Public Use
  Company Number: UTC-030204

PATIENT
  Age: 34 Year
  Sex: Female
  Weight: 45.45 kg

DRUGS (1)
  1. TYVASO (6 MICROGRAM, AEROSOL FOR INHALATION) (TREPROSTINIL SODIUM) [Suspect]
     Route: 055
     Dates: start: 20130110, end: 2013

REACTIONS (2)
  - Respiratory disorder [None]
  - Fatigue [None]
